FAERS Safety Report 19991433 (Version 1)
Quarter: 2021Q4

REPORT INFORMATION
  Report Type: Spontaneous
  Country: TN (occurrence: TN)
  Receive Date: 20211025
  Receipt Date: 20211025
  Transmission Date: 20220303
  Serious: Yes (Hospitalization, Other)
  Sender: FDA-Public Use
  Company Number: TN-LUPIN PHARMACEUTICALS INC.-2021-20425

PATIENT
  Age: 28 Year
  Sex: Male

DRUGS (5)
  1. METHYLPREDNISOLONE [Suspect]
     Active Substance: METHYLPREDNISOLONE
     Indication: Immunosuppressant drug therapy
     Dosage: UNK (PULSE THERAPY)
     Route: 042
  2. ISONIAZID [Concomitant]
     Active Substance: ISONIAZID
     Indication: Pulmonary tuberculosis
     Dosage: UNK
     Route: 065
  3. RIFAMPIN [Concomitant]
     Active Substance: RIFAMPIN
     Indication: Pulmonary tuberculosis
     Dosage: UNK
     Route: 065
  4. PYRAZINAMIDE [Concomitant]
     Active Substance: PYRAZINAMIDE
     Indication: Pulmonary tuberculosis
     Dosage: UNK
     Route: 065
  5. ETHAMBUTOL [Concomitant]
     Active Substance: ETHAMBUTOL HYDROCHLORIDE
     Indication: Pulmonary tuberculosis
     Dosage: UNK
     Route: 065

REACTIONS (3)
  - Disseminated tuberculosis [Unknown]
  - Sepsis [Unknown]
  - Optic neuropathy [Unknown]
